FAERS Safety Report 6119968-0 (Version None)
Quarter: 2009Q1

REPORT INFORMATION
  Report Type: 
  Country: None (occurrence: None)
  Receive Date: 20090316
  Receipt Date: 20090305
  Transmission Date: 20090719
  Serious: Yes (Death, Hospitalization)
  Sender: FDA-Public Use
  Company Number: BR-ELI_LILLY_AND_COMPANY-BR200903001485

PATIENT
  Age: 89 Year
  Sex: Female

DRUGS (2)
  1. ZYPREXA [Suspect]
     Indication: DEMENTIA
     Dosage: 2.5 MG, 2/D
     Route: 048
  2. ZYPREXA [Suspect]
     Dosage: 5 MG, EACH EVENING
     Route: 048

REACTIONS (2)
  - BRONCHOPNEUMONIA [None]
  - SEPSIS [None]
